FAERS Safety Report 20226035 (Version 10)
Quarter: 2023Q4

REPORT INFORMATION
  Report Type: Other
  Country: ES (occurrence: ES)
  Receive Date: 20211224
  Receipt Date: 20231012
  Transmission Date: 20240110
  Serious: Yes (Death, Hospitalization, Other)
  Sender: FDA-Public Use
  Company Number: ES-ROCHE-2978684

PATIENT
  Age: 57 Year
  Sex: Female

DRUGS (22)
  1. OCREVUS [Suspect]
     Active Substance: OCRELIZUMAB
     Indication: Relapsing-remitting multiple sclerosis
     Route: 065
     Dates: start: 20170328
  2. OCREVUS [Suspect]
     Active Substance: OCRELIZUMAB
     Route: 065
     Dates: start: 20170413
  3. OCREVUS [Suspect]
     Active Substance: OCRELIZUMAB
     Route: 065
     Dates: start: 20170913
  4. OCREVUS [Suspect]
     Active Substance: OCRELIZUMAB
     Route: 065
     Dates: start: 20180315
  5. OCREVUS [Suspect]
     Active Substance: OCRELIZUMAB
     Route: 065
     Dates: start: 20180820
  6. OCREVUS [Suspect]
     Active Substance: OCRELIZUMAB
     Route: 065
     Dates: start: 20190218
  7. OCREVUS [Suspect]
     Active Substance: OCRELIZUMAB
     Route: 065
     Dates: start: 20190819
  8. OCREVUS [Suspect]
     Active Substance: OCRELIZUMAB
     Route: 065
     Dates: start: 20200315
  9. OCREVUS [Suspect]
     Active Substance: OCRELIZUMAB
     Route: 065
     Dates: start: 20200909
  10. OCREVUS [Suspect]
     Active Substance: OCRELIZUMAB
     Route: 065
     Dates: start: 20210331
  11. OCREVUS [Suspect]
     Active Substance: OCRELIZUMAB
     Route: 065
     Dates: start: 20210830
  12. PEMBROLIZUMAB [Suspect]
     Active Substance: PEMBROLIZUMAB
     Indication: Progressive multifocal leukoencephalopathy
     Route: 065
     Dates: start: 20211223
  13. ASPIRIN [Concomitant]
     Active Substance: ASPIRIN
  14. CALCIFEDIOL [Concomitant]
     Active Substance: CALCIFEDIOL
  15. EUTHYROX [Concomitant]
     Active Substance: LEVOTHYROXINE SODIUM
  16. ESCITALOPRAM [Concomitant]
     Active Substance: ESCITALOPRAM OXALATE
  17. METFORMIN [Concomitant]
     Active Substance: METFORMIN HYDROCHLORIDE
  18. AMANTADINE [Concomitant]
     Active Substance: AMANTADINE
  19. METHYLPREDNISOLONE [Concomitant]
     Active Substance: METHYLPREDNISOLONE
     Dosage: FOR 3 DAY
  20. LANTUS [Concomitant]
     Active Substance: INSULIN GLARGINE
  21. OMEPRAZOLE [Concomitant]
     Active Substance: OMEPRAZOLE
  22. INSULIN NOS [Concomitant]
     Active Substance: INSULIN NOS

REACTIONS (12)
  - Delirium [Unknown]
  - Colitis [Recovering/Resolving]
  - Anaemia [Recovered/Resolved]
  - Urinary tract infection enterococcal [Recovered/Resolved]
  - Status epilepticus [Fatal]
  - Haematoma muscle [Recovered/Resolved]
  - JC polyomavirus test positive [Unknown]
  - COVID-19 [Recovered/Resolved]
  - Progressive multifocal leukoencephalopathy [Fatal]
  - Enteritis [Recovered/Resolved]
  - COVID-19 [Unknown]
  - Immune reconstitution inflammatory syndrome [Unknown]

NARRATIVE: CASE EVENT DATE: 20211117
